FAERS Safety Report 9886735 (Version 1)
Quarter: 2014Q1

REPORT INFORMATION
  Report Type: Spontaneous
  Country: BR (occurrence: BR)
  Receive Date: 20140210
  Receipt Date: 20140210
  Transmission Date: 20141002
  Serious: Yes (Other)
  Sender: FDA-Public Use
  Company Number: PHHY2014BR012862

PATIENT
  Age: 77 Year
  Sex: Female
  Weight: 40 kg

DRUGS (7)
  1. NEOTIAPIM [Suspect]
     Indication: VASCULAR DEMENTIA
     Dosage: 175 MG
     Route: 048
  2. MEMANTINE [Concomitant]
     Indication: DEMENTIA
     Dosage: 20 MG, QD
     Route: 048
  3. RIVASTIGMINE [Concomitant]
     Indication: DEMENTIA
     Dosage: 2 DF,QD
     Route: 048
  4. METFORMIN [Concomitant]
     Indication: DIABETES MELLITUS
     Dosage: 1 DF, QD
     Route: 048
  5. TECTA [Concomitant]
  6. DIGEDRAT [Concomitant]
     Dosage: 2 DF, QD
     Route: 048
  7. SERTRALIN [Concomitant]
     Indication: DEMENTIA

REACTIONS (4)
  - Fatigue [Not Recovered/Not Resolved]
  - Gait disturbance [Not Recovered/Not Resolved]
  - Dysphagia [Not Recovered/Not Resolved]
  - Wrong technique in drug usage process [Not Recovered/Not Resolved]
